FAERS Safety Report 6270112-9 (Version None)
Quarter: 2009Q3

REPORT INFORMATION
  Report Type: 
  Country: None (occurrence: None)
  Receive Date: 20090716
  Receipt Date: 20090413
  Transmission Date: 20100115
  Serious: No
  Sender: FDA-Public Use
  Company Number: US-BAYER-200918144NA

PATIENT
  Age: 40 Year
  Sex: Female
  Weight: 58 kg

DRUGS (1)
  1. YAZ [Suspect]
     Indication: POLYCYSTIC OVARIES
     Route: 048
     Dates: start: 20080101

REACTIONS (7)
  - ANXIETY [None]
  - BACK PAIN [None]
  - BREAST TENDERNESS [None]
  - MUSCLE SPASMS [None]
  - NO ADVERSE EVENT [None]
  - PAIN [None]
  - WEIGHT INCREASED [None]
